FAERS Safety Report 5413733-5 (Version None)
Quarter: 2007Q3

REPORT INFORMATION
  Report Type: 
  Country: None (occurrence: None)
  Receive Date: 20070814
  Receipt Date: 20070809
  Transmission Date: 20080115
  Serious: Yes (Life-Threatening, Hospitalization, Other)
  Sender: FDA-Public Use
  Company Number: DE-BRISTOL-MYERS SQUIBB COMPANY-13709100

PATIENT
  Age: 65 Year
  Sex: Female

DRUGS (5)
  1. CETUXIMAB [Suspect]
     Indication: METASTATIC GASTRIC CANCER
     Dosage: AGAIN STARTED FORM 07-AUG-2007
     Route: 042
     Dates: start: 20070228, end: 20070228
  2. CAMPTOSAR [Suspect]
     Indication: METASTATIC GASTRIC CANCER
     Dosage: AGAIN SRARTED FROM 07-AUG-2007
     Route: 042
     Dates: start: 20070228, end: 20070228
  3. FOLINIC ACID [Suspect]
     Indication: METASTATIC GASTRIC CANCER
     Dosage: AGAIN STARTED FROM 07-AUG-2007
     Route: 042
     Dates: start: 20070228, end: 20070228
  4. FLUOROURACIL [Suspect]
     Indication: METASTATIC GASTRIC CANCER
     Dosage: AGAIN ATARTED FROM 07-AUG-2007
     Route: 042
     Dates: start: 20070228, end: 20070228
  5. ZOMETA [Concomitant]
     Indication: HYPERCALCAEMIA
     Dates: start: 20070223

REACTIONS (2)
  - HYPOCALCAEMIA [None]
  - TETANY [None]
